FAERS Safety Report 20125402 (Version 1)
Quarter: 2021Q4

REPORT INFORMATION
  Report Type: Spontaneous
  Country: US (occurrence: None)
  Receive Date: 20211127
  Receipt Date: 20211127
  Transmission Date: 20220303
  Serious: Yes (Disabling)
  Sender: FDA-Public Use
  Company Number: None

PATIENT
  Age: 49 Year
  Sex: Female
  Weight: 72 kg

DRUGS (1)
  1. ZILRETTA [Suspect]
     Active Substance: TRIAMCINOLONE ACETONIDE
     Indication: Osteoarthritis
     Dosage: OTHER FREQUENCY : ONE TIME INJECTION;?OTHER ROUTE : JOINT INJECTION;?
     Route: 050
     Dates: start: 20210628, end: 20210628

REACTIONS (8)
  - Arthralgia [None]
  - Gait inability [None]
  - Chondropathy [None]
  - Bone contusion [None]
  - Back pain [None]
  - Joint effusion [None]
  - Loss of personal independence in daily activities [None]
  - Quality of life decreased [None]

NARRATIVE: CASE EVENT DATE: 20210823
